FAERS Safety Report 8288964-X (Version None)
Quarter: 2012Q2

REPORT INFORMATION
  Report Type: 
  Country: None (occurrence: None)
  Receive Date: 20120417
  Receipt Date: 20120409
  Transmission Date: 20120825
  Serious: Yes (Death, Hospitalization, Disabling, Other)
  Sender: FDA-Public Use
  Company Number: US-CELGENEUS-163-21880-12021400

PATIENT
  Sex: Female
  Weight: 51.302 kg

DRUGS (3)
  1. REVLIMID [Suspect]
     Dosage: 5 MILLIGRAM
     Route: 048
  2. REVLIMID [Suspect]
     Dosage: 5 MILLIGRAM
     Route: 048
     Dates: start: 20111001
  3. PROCRIT [Concomitant]
     Dosage: 60,000 UNITS
     Route: 058

REACTIONS (4)
  - PNEUMONIA [None]
  - MYELODYSPLASTIC SYNDROME TRANSFORMATION [None]
  - PLATELET COUNT DECREASED [None]
  - ACUTE MYELOID LEUKAEMIA [None]
